FAERS Safety Report 8484864-0 (Version None)
Quarter: 2012Q3

REPORT INFORMATION
  Report Type: 
  Country: None (occurrence: None)
  Receive Date: 20120703
  Receipt Date: 20120621
  Transmission Date: 20120928
  Serious: Yes (Hospitalization, Other)
  Sender: FDA-Public Use
  Company Number: US-ELI_LILLY_AND_COMPANY-US201107003149

PATIENT
  Sex: Female

DRUGS (14)
  1. FORTEO [Suspect]
     Dosage: 20 UG, QD
     Dates: start: 20110324, end: 20120401
  2. FORTEO [Suspect]
     Dosage: 20 UG, QD
     Route: 065
  3. DETROL [Concomitant]
     Dosage: UNK
  4. FUROSEMIDE [Concomitant]
     Dosage: UNK
  5. LYRICA [Concomitant]
     Dosage: UNK
  6. LOSARTAN POTASSIUM [Concomitant]
     Dosage: UNK
  7. CALCIUM [Concomitant]
     Dosage: UNK
  8. VITAMIN D [Concomitant]
     Dosage: UNK
  9. FORTEO [Suspect]
     Indication: OSTEOPOROSIS
     Dosage: 20 UG, QD
     Route: 065
     Dates: start: 20110201
  10. FORTEO [Suspect]
     Dosage: 20 UG, QD
     Route: 065
  11. ASPIRIN [Concomitant]
     Dosage: UNK
  12. IRON [Concomitant]
     Dosage: UNK
  13. FORTEO [Suspect]
     Dosage: 20 UG, QD
     Route: 065
  14. FOLIC ACID [Concomitant]
     Dosage: UNK

REACTIONS (13)
  - PNEUMONIA [None]
  - HAEMORRHAGE [None]
  - ASTHENIA [None]
  - GAIT DISTURBANCE [None]
  - HAEMOGLOBIN DECREASED [None]
  - BONE PAIN [None]
  - CONTUSION [None]
  - DYSPNOEA [None]
  - DYSSTASIA [None]
  - COLON CANCER [None]
  - BACK PAIN [None]
  - SOMNOLENCE [None]
  - BALANCE DISORDER [None]
